FAERS Safety Report 20556412 (Version 4)
Quarter: 2022Q2

REPORT INFORMATION
  Report Type: Report from Study
  Country: US (occurrence: US)
  Receive Date: 20220305
  Receipt Date: 20220505
  Transmission Date: 20220721
  Serious: Yes (Hospitalization, Other)
  Sender: FDA-Public Use
  Company Number: US-NOVARTISPH-NVSC2022US049744

PATIENT
  Sex: Male

DRUGS (1)
  1. ENTRESTO [Suspect]
     Active Substance: SACUBITRIL\VALSARTAN
     Indication: Cardiac failure
     Dosage: 1 DOSAGE FORM, BID
     Route: 048

REACTIONS (11)
  - Fluid retention [Unknown]
  - Diabetes mellitus [Unknown]
  - Malaise [Unknown]
  - Dyspepsia [Unknown]
  - Decreased appetite [Unknown]
  - Illness [Unknown]
  - Hypersomnia [Unknown]
  - Epistaxis [Unknown]
  - Peripheral swelling [Unknown]
  - Asthenia [Unknown]
  - Hypotension [Unknown]
